FAERS Safety Report 5247019-9 (Version None)
Quarter: 2007Q1

REPORT INFORMATION
  Report Type: 
  Country: None (occurrence: None)
  Receive Date: 20070226
  Receipt Date: 20070220
  Transmission Date: 20070707
  Serious: Yes (Other)
  Sender: FDA-Public Use
  Company Number: GB-GLAXOSMITHKLINE-B0459078A

PATIENT
  Sex: Female

DRUGS (2)
  1. SEROXAT [Suspect]
     Route: 048
     Dates: start: 20010101, end: 20070101
  2. AMITRIPTYLINE HCL [Suspect]
     Indication: PAIN
     Dates: end: 20070101

REACTIONS (6)
  - ABNORMAL DREAMS [None]
  - DRUG WITHDRAWAL SYNDROME [None]
  - HALLUCINATION [None]
  - HEADACHE [None]
  - HYPERHIDROSIS [None]
  - THINKING ABNORMAL [None]
